FAERS Safety Report 6190226-1 (Version None)
Quarter: 2009Q2

REPORT INFORMATION
  Report Type: 
  Country: None (occurrence: None)
  Receive Date: 20090514
  Receipt Date: 20090505
  Transmission Date: 20091009
  Serious: Yes (Hospitalization)
  Sender: FDA-Public Use
  Company Number: FR-PFIZER INC-2009207638

PATIENT
  Age: 77 Year

DRUGS (1)
  1. TRIFLUCAN [Suspect]
     Indication: OESOPHAGEAL CANDIDIASIS
     Dosage: UNK
     Route: 048
     Dates: start: 20081011, end: 20081102

REACTIONS (5)
  - ECZEMA [None]
  - EOSINOPHILIA [None]
  - RASH GENERALISED [None]
  - TOXIC SKIN ERUPTION [None]
  - VASCULAR PURPURA [None]
